FAERS Safety Report 6538949-6 (Version None)
Quarter: 2010Q1

REPORT INFORMATION
  Report Type: 
  Country: None (occurrence: None)
  Receive Date: 20100115
  Receipt Date: 20100113
  Transmission Date: 20100710
  Serious: Yes (Other)
  Sender: FDA-Public Use
  Company Number: DE-SANOFI-AVENTIS-2010SA001876

PATIENT
  Age: 40 Year
  Sex: Male
  Weight: 72 kg

DRUGS (3)
  1. ARAVA [Suspect]
     Indication: RHEUMATOID ARTHRITIS
     Route: 048
     Dates: start: 20080601, end: 20090101
  2. METHOTREXAT [Suspect]
     Indication: RHEUMATOID ARTHRITIS
     Route: 058
     Dates: start: 20081201, end: 20091013
  3. OMEPRAZOLE [Concomitant]
     Route: 048

REACTIONS (1)
  - HEPATIC ENZYME INCREASED [None]
